FAERS Safety Report 5066452-1 (Version None)
Quarter: 2006Q3

REPORT INFORMATION
  Report Type: 
  Country: None (occurrence: None)
  Receive Date: 20060728
  Receipt Date: 20060714
  Transmission Date: 20061208
  Serious: Yes (Hospitalization, Other)
  Sender: FDA-Public Use
  Company Number: 200612448BCC

PATIENT
  Age: 59 Year
  Sex: Female
  Weight: 69.4003 kg

DRUGS (5)
  1. ALEVE [Suspect]
     Indication: JOINT SWELLING
     Dosage: 440 MG, TOTAL DAILY, ORAL
     Route: 048
     Dates: start: 20050101, end: 20050501
  2. ALTACE [Concomitant]
  3. LIPITOR [Concomitant]
  4. GLIPIZIDE [Concomitant]
  5. ACTOS [Concomitant]

REACTIONS (13)
  - ABDOMINAL TENDERNESS [None]
  - ANAEMIA [None]
  - BLOOD PRESSURE DIASTOLIC DECREASED [None]
  - DIARRHOEA [None]
  - DIVERTICULITIS [None]
  - GASTRIC ULCER [None]
  - GASTRITIS EROSIVE [None]
  - GASTROOESOPHAGEAL REFLUX DISEASE [None]
  - HIATUS HERNIA [None]
  - HYPERCHLORHYDRIA [None]
  - PYREXIA [None]
  - RESPIRATORY RATE INCREASED [None]
  - UPPER GASTROINTESTINAL HAEMORRHAGE [None]
